FAERS Safety Report 19146346 (Version 3)
Quarter: 2021Q2

REPORT INFORMATION
  Report Type: Spontaneous
  Country: US (occurrence: US)
  Receive Date: 20210416
  Receipt Date: 20210421
  Transmission Date: 20210717
  Serious: No
  Sender: FDA-Public Use
  Company Number: US-PFIZER INC-2021197946

PATIENT
  Age: 34 Year
  Sex: Male

DRUGS (1)
  1. METHOTREXATE SODIUM. [Suspect]
     Active Substance: METHOTREXATE SODIUM
     Indication: INFLAMMATORY BOWEL DISEASE
     Dosage: UNK

REACTIONS (4)
  - Drug intolerance [Unknown]
  - Treatment failure [Unknown]
  - Off label use [Unknown]
  - Drug ineffective for unapproved indication [Unknown]
